FAERS Safety Report 4426061-1 (Version None)
Quarter: 2004Q3

REPORT INFORMATION
  Report Type: 
  Country: None (occurrence: None)
  Receive Date: 20040811
  Receipt Date: 20040728
  Transmission Date: 20050211
  Serious: Yes (Hospitalization)
  Sender: FDA-Public Use
  Company Number: RENA-11115

PATIENT
  Age: 44 Year
  Sex: Male

DRUGS (11)
  1. PHOSBLOCK - 250 MG TABLETS [Suspect]
     Indication: HYPERPHOSPHATAEMIA
  2. CALCIUM CARBONATE [Concomitant]
  3. ALUMINUM HYDROXIDE GEL [Concomitant]
  4. MAGNESIUM HYDROXIDE TAB [Concomitant]
  5. VALSARTAN [Concomitant]
  6. AMLODIPINE BESYLATE [Concomitant]
  7. ATENOLOL [Concomitant]
  8. POLAPREZINC [Concomitant]
  9. RABEPRAZOLE SODIUM [Concomitant]
  10. NIFEDIPINE [Concomitant]
  11. VITAMIN D [Concomitant]

REACTIONS (1)
  - INTESTINAL OBSTRUCTION [None]
